FAERS Safety Report 5937666-0 (Version None)
Quarter: 2008Q4

REPORT INFORMATION
  Report Type: 
  Country: None (occurrence: None)
  Receive Date: 20081029
  Receipt Date: 20081017
  Transmission Date: 20090506
  Serious: Yes (Death, Other)
  Sender: FDA-Public Use
  Company Number: 2008-00904

PATIENT
  Age: 61 Year
  Sex: Male
  Weight: 47 kg

DRUGS (7)
  1. VELCADE [Suspect]
     Indication: MULTIPLE MYELOMA
     Dosage: 1.76 MG, INTRAVENOUS, 1.70 MG, INTRAVENOUS, 1.4 MG, INTRAVENOUS, 1.39 MG, INTRAVENOUS
     Route: 042
     Dates: start: 20070119, end: 20070129
  2. VELCADE [Suspect]
     Indication: MULTIPLE MYELOMA
     Dosage: 1.76 MG, INTRAVENOUS, 1.70 MG, INTRAVENOUS, 1.4 MG, INTRAVENOUS, 1.39 MG, INTRAVENOUS
     Route: 042
     Dates: start: 20070209, end: 20070212
  3. VELCADE [Suspect]
     Indication: MULTIPLE MYELOMA
     Dosage: 1.76 MG, INTRAVENOUS, 1.70 MG, INTRAVENOUS, 1.4 MG, INTRAVENOUS, 1.39 MG, INTRAVENOUS
     Route: 042
     Dates: start: 20070413, end: 20070416
  4. VELCADE [Suspect]
     Indication: MULTIPLE MYELOMA
     Dosage: 1.76 MG, INTRAVENOUS, 1.70 MG, INTRAVENOUS, 1.4 MG, INTRAVENOUS, 1.39 MG, INTRAVENOUS
     Route: 042
     Dates: start: 20080509, end: 20080509
  5. DEXAMETHASONE [Concomitant]
  6. FENTANYL-100 [Concomitant]
  7. HARNAL (TAMSULOSIN HYDROCHLORIDE) [Concomitant]

REACTIONS (11)
  - BRONCHOPULMONARY ASPERGILLOSIS [None]
  - HEPATIC FUNCTION ABNORMAL [None]
  - HYPOAESTHESIA [None]
  - ILEUS PARALYTIC [None]
  - LYMPHOCYTE COUNT DECREASED [None]
  - NEUROGENIC BLADDER [None]
  - NEUTROPHIL COUNT DECREASED [None]
  - PNEUMONIA [None]
  - SPINAL COMPRESSION FRACTURE [None]
  - SPINAL CORD COMPRESSION [None]
  - URINARY RETENTION [None]
